FAERS Safety Report 10885751 (Version 1)
Quarter: 2015Q1

REPORT INFORMATION
  Report Type: Spontaneous
  Country: US (occurrence: US)
  Receive Date: 20150304
  Receipt Date: 20150304
  Transmission Date: 20150721
  Serious: Yes (Congenital Anomaly, Other)
  Sender: FDA-Public Use
  Company Number: US-APOTEX-2015AP007073

PATIENT
  Age: 0 Day
  Sex: Male

DRUGS (2)
  1. PAXIL CR [Suspect]
     Active Substance: PAROXETINE HYDROCHLORIDE
     Indication: PRODUCT USED FOR UNKNOWN INDICATION
     Dosage: 12.5 MG, QD
     Route: 064
     Dates: start: 2003, end: 2003
  2. PRENATAL VITAMINS                  /07426201/ [Concomitant]
     Active Substance: ASCORBIC ACID\BIOTIN\MINERALS\NIACIN\RETINOL\TOCOPHEROL\VITAMIN B\VITAMIN D
     Indication: PRODUCT USED FOR UNKNOWN INDICATION
     Route: 064

REACTIONS (7)
  - Mitral valve incompetence [Unknown]
  - Aortic valve disease [Unknown]
  - Ventricular hypertrophy [Unknown]
  - Foetal exposure during pregnancy [Unknown]
  - Heart disease congenital [Unknown]
  - Cryptorchism [Unknown]
  - Hydrocele [Unknown]

NARRATIVE: CASE EVENT DATE: 20031224
